FAERS Safety Report 13770436 (Version 2)
Quarter: 2017Q3

REPORT INFORMATION
  Report Type: Spontaneous
  Country: US (occurrence: US)
  Receive Date: 20170719
  Receipt Date: 20170802
  Transmission Date: 20171127
  Serious: Yes (Hospitalization)
  Sender: FDA-Public Use
  Company Number: US-VERTEX PHARMACEUTICALS-2017-003693

PATIENT
  Age: 18 Year
  Sex: Female

DRUGS (18)
  1. AZITHROMYCIN ANHYDROUS. [Concomitant]
     Active Substance: AZITHROMYCIN ANHYDROUS
     Dosage: TAKE ONE TABLET EVERY MONDAY, WEDNESDAY AND FRIDAY
     Route: 048
  2. LINEZOLID. [Concomitant]
     Active Substance: LINEZOLID
     Dosage: TAKE ONE TABLET BY MOUTH TWICE A DAY
     Route: 048
  3. INSULIN ASPART [Concomitant]
     Active Substance: INSULIN ASPART
     Dosage: INJECT AS DIRECTED
     Route: 058
  4. ALBUTEROL SULFATE. [Concomitant]
     Active Substance: ALBUTEROL SULFATE
     Dosage: INHALE 4 PUFFS VIA AEROCHAMBER EVERY 4-6 HOURS
  5. CIPROFLOXACIN HCL [Concomitant]
     Active Substance: CIPROFLOXACIN HYDROCHLORIDE
     Dosage: TAKE ONE TABLET BY MOUTH TWICE A DAY FOR 14 DAYS
     Route: 048
  6. ORKAMBI [Suspect]
     Active Substance: IVACAFTOR\LUMACAFTOR
     Indication: CYSTIC FIBROSIS
     Dosage: 2 DF (200/ 125 MG EACH), BID
     Route: 048
     Dates: start: 20150805
  7. AMYLASE W/LIPASE/PROTEASE [Concomitant]
     Active Substance: AMYLASE\LIPASE\PROTEASE
     Dosage: TAKE 4 CAPSULES WITH EACH MEAL AND SNACKS
     Route: 048
  8. ACETAMINOPHEN. [Concomitant]
     Active Substance: ACETAMINOPHEN
     Indication: PAIN
     Dosage: TAKE 1 TO 2 TABLETS BY MOUTH EVERY SIX HOURS AS NEEDED
     Route: 048
  9. ESOMEPRAZOLE MAGNESIUM. [Concomitant]
     Active Substance: ESOMEPRAZOLE MAGNESIUM
     Dosage: TAKE ONE CAPSULE EVERY DAY
     Route: 048
  10. PREDNISONE. [Concomitant]
     Active Substance: PREDNISONE
     Dosage: 2 DF, EVERY MEAL
     Route: 048
  11. NYSTATIN. [Concomitant]
     Active Substance: NYSTATIN
     Dosage: APPLY TO AFFECTED AREAS THREE TIMES A DAY
     Route: 061
  12. CIPROFLOXACINE [Concomitant]
     Active Substance: CIPROFLOXACIN
     Dosage: TWO TABLETS BY TWICE A DAY
     Route: 048
  13. FLUTICASONE W/SALMETEROL [Concomitant]
     Active Substance: FLUTICASONE PROPIONATE\SALMETEROL XINAFOATE
     Dosage: 1 DF, BID
     Route: 055
  14. ALBUTEROL SULFATE. [Concomitant]
     Active Substance: ALBUTEROL SULFATE
     Dosage: 4 PUFFS WITH AEROCHAMBER FOUR TIMES A
     Route: 055
  15. MONTELUKAST SODIUM. [Concomitant]
     Active Substance: MONTELUKAST SODIUM
     Dosage: ONE TABLET BY MOUTH EVERY DAY AT BEDTIME
     Route: 048
  16. CETRIZINE [Concomitant]
     Active Substance: CETIRIZINE HYDROCHLORIDE
     Dosage: 1 DF, EVERY DAY
     Route: 048
  17. MINOCYCLINE HCL [Concomitant]
     Active Substance: MINOCYCLINE HYDROCHLORIDE
     Dosage: 1 DF, BID
     Route: 048
  18. CAYSTON [Concomitant]
     Active Substance: AZTREONAM
     Route: 055

REACTIONS (1)
  - Infective pulmonary exacerbation of cystic fibrosis [Recovered/Resolved]

NARRATIVE: CASE EVENT DATE: 201707
